FAERS Safety Report 5750093-4 (Version None)
Quarter: 2008Q2

REPORT INFORMATION
  Report Type: 
  Country: None (occurrence: None)
  Receive Date: 20080527
  Receipt Date: 20080516
  Transmission Date: 20081010
  Serious: Yes (Other)
  Sender: FDA-Public Use
  Company Number: US-PFIZER INC-2005085355

PATIENT
  Sex: Male

DRUGS (1)
  1. VIAGRA [Suspect]

REACTIONS (9)
  - BARRETT'S OESOPHAGUS [None]
  - BLOOD GLUCOSE INCREASED [None]
  - DIABETES MELLITUS [None]
  - DYSPEPSIA [None]
  - GASTRITIS [None]
  - GASTROINTESTINAL INFLAMMATION [None]
  - METAPLASIA [None]
  - REFLUX OESOPHAGITIS [None]
  - WEIGHT DECREASED [None]
